FAERS Safety Report 7492500-5 (Version None)
Quarter: 2011Q2

REPORT INFORMATION
  Report Type: 
  Country: None (occurrence: None)
  Receive Date: 20110519
  Receipt Date: 20110517
  Transmission Date: 20111010
  Serious: Yes (Hospitalization, Other)
  Sender: FDA-Public Use
  Company Number: GB-PFIZER INC-2011105307

PATIENT
  Sex: Female

DRUGS (1)
  1. VARENICLINE TARTRATE [Suspect]
     Indication: SMOKING CESSATION THERAPY
     Dosage: UNK
     Dates: start: 20100801

REACTIONS (10)
  - MUSCLE SPASMS [None]
  - ABDOMINAL DISTENSION [None]
  - POLYP COLORECTAL [None]
  - DYSPNOEA [None]
  - CONSTIPATION [None]
  - DECREASED APPETITE [None]
  - WEIGHT DECREASED [None]
  - PAIN [None]
  - HIATUS HERNIA [None]
  - CHANGE OF BOWEL HABIT [None]
